APPROVED DRUG PRODUCT: HYDROCHLOROTHIAZIDE
Active Ingredient: HYDROCHLOROTHIAZIDE
Strength: 12.5MG
Dosage Form/Route: TABLET;ORAL
Application: A040857 | Product #001
Applicant: SUN PHARMACEUTICAL INDUSTRIES INC
Approved: May 30, 2008 | RLD: No | RS: No | Type: DISCN